FAERS Safety Report 5460907-3 (Version None)
Quarter: 2007Q3

REPORT INFORMATION
  Report Type: 
  Country: None (occurrence: None)
  Receive Date: 20070814
  Receipt Date: 20070420
  Transmission Date: 20080115
  Serious: Yes (Life-Threatening, Hospitalization, Other)
  Sender: FDA-Public Use
  Company Number: ALK_00196_2007

PATIENT
  Sex: Female
  Weight: 65.7716 kg

DRUGS (3)
  1. VIVITROL [Suspect]
     Indication: ALCOHOLISM
     Dosage: (380 MG 1X/MONTH INTRAMUSCULAR)
     Route: 030
     Dates: start: 20070415
  2. METHADONE HCL [Concomitant]
  3. XANAX [Concomitant]

REACTIONS (8)
  - DRUG WITHDRAWAL SYNDROME [None]
  - FEAR [None]
  - GRAND MAL CONVULSION [None]
  - HAEMOGLOBIN DECREASED [None]
  - NIGHTMARE [None]
  - RESPIRATORY ARREST [None]
  - SLEEP DISORDER [None]
  - SOCIAL FEAR [None]
